FAERS Safety Report 8390462-X (Version None)
Quarter: 2012Q2

REPORT INFORMATION
  Report Type: 
  Country: None (occurrence: None)
  Receive Date: 20120529
  Receipt Date: 20120516
  Transmission Date: 20120825
  Serious: Yes (Hospitalization)
  Sender: FDA-Public Use
  Company Number: US-JNJFOC-20120515263

PATIENT
  Sex: Male
  Weight: 31.6 kg

DRUGS (6)
  1. REMICADE [Suspect]
     Route: 042
     Dates: start: 20120302
  2. CALCIUM CARBONATE [Concomitant]
  3. PREDNISONE TAB [Concomitant]
  4. REMICADE [Suspect]
     Indication: INFLAMMATORY BOWEL DISEASE
     Route: 042
     Dates: start: 20120119
  5. VITRON-C [Concomitant]
  6. METHOTREXATE [Concomitant]

REACTIONS (1)
  - CONSTIPATION [None]
